FAERS Safety Report 8471740-2 (Version None)
Quarter: 2012Q2

REPORT INFORMATION
  Report Type: 
  Country: None (occurrence: None)
  Receive Date: 20120627
  Receipt Date: 20120618
  Transmission Date: 20120825
  Serious: Yes (Hospitalization, Other)
  Sender: FDA-Public Use
  Company Number: JP-ASTRAZENECA-2012SE38191

PATIENT
  Age: 56 Year
  Sex: Male
  Weight: 103 kg

DRUGS (7)
  1. WARFARIN SODIUM [Concomitant]
     Indication: ATRIAL FIBRILLATION
     Route: 048
     Dates: start: 20101201
  2. CLONAZEPAM [Concomitant]
     Route: 048
     Dates: start: 20101201
  3. LANSOPRAZOLE [Concomitant]
     Route: 048
     Dates: start: 20101201
  4. OLMETEC [Concomitant]
     Indication: CARDIAC FAILURE CONGESTIVE
     Route: 048
     Dates: start: 20101201
  5. LYRICA [Concomitant]
     Route: 065
  6. CRESTOR [Suspect]
     Indication: DYSLIPIDAEMIA
     Route: 048
     Dates: start: 20101201, end: 20120526
  7. CARVEDILOL [Concomitant]
     Indication: CARDIAC FAILURE CONGESTIVE
     Route: 048
     Dates: start: 20101201

REACTIONS (4)
  - GENERALISED OEDEMA [None]
  - DYSPNOEA [None]
  - MUSCLE SPASMS [None]
  - BLOOD CREATINE PHOSPHOKINASE INCREASED [None]
